FAERS Safety Report 10170671 (Version 2)
Quarter: 2014Q2

REPORT INFORMATION
  Report Type: Report from Study
  Country: US (occurrence: US)
  Receive Date: 20140514
  Receipt Date: 20140514
  Transmission Date: 20141212
  Serious: Yes (Hospitalization, Other)
  Sender: FDA-Public Use
  Company Number: US-BIOGENIDEC-2005BI021777

PATIENT
  Age: 61 Year
  Sex: Female

DRUGS (3)
  1. AVONEX [Suspect]
     Indication: MULTIPLE SCLEROSIS
     Route: 030
  2. AVONEX [Suspect]
     Indication: MULTIPLE SCLEROSIS
     Route: 030
     Dates: start: 20000301
  3. AVONEX [Suspect]
     Indication: MULTIPLE SCLEROSIS
     Route: 030
     Dates: start: 20020301

REACTIONS (16)
  - Breast cancer stage II [Recovered/Resolved]
  - Post procedural haematoma [Recovered/Resolved]
  - Cervical spinal stenosis [Recovered/Resolved]
  - Lumbar spinal stenosis [Recovered/Resolved]
  - Apparent death [Unknown]
  - Memory impairment [Not Recovered/Not Resolved]
  - Gait disturbance [Not Recovered/Not Resolved]
  - Hallucination [Recovered/Resolved]
  - Drug administered at inappropriate site [Not Recovered/Not Resolved]
  - Stress [Not Recovered/Not Resolved]
  - Balance disorder [Not Recovered/Not Resolved]
  - Multiple sclerosis relapse [Recovered/Resolved]
  - Anxiety [Not Recovered/Not Resolved]
  - Depression [Recovered/Resolved]
  - Asthenia [Unknown]
  - Malaise [Recovered/Resolved]
